FAERS Safety Report 9077557 (Version 1)
Quarter: 2013Q1

REPORT INFORMATION
  Report Type: Spontaneous
  Country: AR (occurrence: AR)
  Receive Date: 20130130
  Receipt Date: 20130130
  Transmission Date: 20140127
  Serious: Yes (Death)
  Sender: FDA-Public Use
  Company Number: PHHY2013AR008367

PATIENT
  Sex: Female

DRUGS (1)
  1. DIOVAN [Suspect]
     Indication: BLOOD PRESSURE
     Dosage: 1 DF, PER DAY
     Route: 048
     Dates: start: 2011

REACTIONS (3)
  - Lung disorder [Fatal]
  - Fluid retention [Fatal]
  - General physical health deterioration [Unknown]
